FAERS Safety Report 7128921-X (Version None)
Quarter: 2010Q4

REPORT INFORMATION
  Report Type: 
  Country: None (occurrence: None)
  Receive Date: 20101130
  Receipt Date: 20101119
  Transmission Date: 20110411
  Serious: Yes (Death, Hospitalization, Congenital Anomaly)
  Sender: FDA-Public Use
  Company Number: A0896774A

PATIENT
  Sex: Female
  Weight: 4.1 kg

DRUGS (2)
  1. PAXIL [Suspect]
  2. PRENATAL VITAMINS [Concomitant]
     Dates: start: 19980910

REACTIONS (8)
  - ANOMALOUS PULMONARY VENOUS CONNECTION [None]
  - ASPLENIA [None]
  - DRUG EXPOSURE DURING PREGNANCY [None]
  - HEART DISEASE CONGENITAL [None]
  - PATENT DUCTUS ARTERIOSUS [None]
  - PULMONARY VALVE STENOSIS [None]
  - TRANSPOSITION OF THE GREAT VESSELS [None]
  - UNIVENTRICULAR HEART [None]
